FAERS Safety Report 11536929 (Version 1)
Quarter: 2015Q3

REPORT INFORMATION
  Report Type: Spontaneous
  Country: US (occurrence: None)
  Receive Date: 20150921
  Receipt Date: 20150921
  Transmission Date: 20151125
  Serious: Yes (Other)
  Sender: FDA-Public Use
  Company Number: None

PATIENT
  Age: 61 Year
  Sex: Female
  Weight: 61.24 kg

DRUGS (3)
  1. CREST 3D WHITE WHITESTRIPS DENTAL WHITENING KIT, VERSION UNKNOWN(HYDROGEN PEROXIDE 5.3-14 %) STRIP, 1STRIP [Suspect]
     Active Substance: HYDROGEN PEROXIDE
     Indication: DENTAL COSMETIC PROCEDURE
     Dosage: ONE STRIP, ON TEETH
     Dates: start: 20150202, end: 20150205
  2. CALCIUM [Concomitant]
     Active Substance: CALCIUM
  3. VITAMIN D [Concomitant]
     Active Substance: CHOLECALCIFEROL

REACTIONS (5)
  - Facial pain [None]
  - Dental necrosis [None]
  - Apical granuloma [None]
  - Sensitivity of teeth [None]
  - Toothache [None]

NARRATIVE: CASE EVENT DATE: 20150202
